FAERS Safety Report 11623493 (Version 1)
Quarter: 2015Q4

REPORT INFORMATION
  Report Type: Spontaneous
  Country: US (occurrence: None)
  Receive Date: 20151009
  Receipt Date: 20151009
  Transmission Date: 20160304
  Serious: Yes (Hospitalization)
  Sender: FDA-Public Use
  Company Number: None

PATIENT
  Age: 40 Year
  Sex: Male

DRUGS (6)
  1. HYPERSAL [Concomitant]
  2. CAYSTON [Concomitant]
     Active Substance: AZTREONAM
  3. PANGES [Concomitant]
  4. TOBI [Suspect]
     Active Substance: TOBRAMYCIN
     Indication: CYSTIC FIBROSIS
     Dosage: 300MG/5ML BID QUMONTH
     Route: 055
     Dates: start: 20150602
  5. PULMOZYME [Suspect]
     Active Substance: DORNASE ALFA
     Indication: CYSTIC FIBROSIS
     Dosage: 2.5MG/2.5ML
     Route: 055
     Dates: start: 20150602
  6. CALCIUM [Concomitant]
     Active Substance: CALCIUM

REACTIONS (2)
  - Sinusitis [None]
  - Cystic fibrosis [None]

NARRATIVE: CASE EVENT DATE: 20150924
